FAERS Safety Report 14648133 (Version 1)
Quarter: 2018Q1

REPORT INFORMATION
  Report Type: Spontaneous
  Country: US (occurrence: US)
  Receive Date: 20180316
  Receipt Date: 20180316
  Transmission Date: 20180509
  Serious: Yes (Hospitalization)
  Sender: FDA-Public Use
  Company Number: US-PFIZER INC-2018112174

PATIENT
  Age: 59 Year
  Sex: Female

DRUGS (1)
  1. RAPAMUNE [Suspect]
     Active Substance: SIROLIMUS

REACTIONS (7)
  - Norovirus test positive [Unknown]
  - Diarrhoea [Unknown]
  - Condition aggravated [Unknown]
  - Nausea [Unknown]
  - Chronic kidney disease [Unknown]
  - Failure to thrive [Unknown]
  - Vomiting [Unknown]
